FAERS Safety Report 9616514 (Version 1)
Quarter: 2013Q4

REPORT INFORMATION
  Report Type: Spontaneous
  Country: CA (occurrence: CA)
  Receive Date: 20131011
  Receipt Date: 20131011
  Transmission Date: 20140711
  Serious: Yes (Other)
  Sender: FDA-Public Use
  Company Number: CA-SA-2013SA098665

PATIENT
  Sex: Female

DRUGS (4)
  1. TAXOTERE [Suspect]
     Indication: BREAST CANCER METASTATIC
     Route: 065
  2. HERCEPTIN [Suspect]
     Indication: BREAST CANCER METASTATIC
     Route: 065
  3. COUMADIN [Concomitant]
     Indication: THROMBOSIS PROPHYLAXIS
  4. QUINAPRIL [Concomitant]
     Indication: BLOOD PRESSURE

REACTIONS (3)
  - Disease progression [Unknown]
  - Deep vein thrombosis [Unknown]
  - Cardiac disorder [Unknown]
